FAERS Safety Report 5381698-0 (Version None)
Quarter: 2007Q3

REPORT INFORMATION
  Report Type: 
  Country: None (occurrence: None)
  Receive Date: 20070705
  Receipt Date: 20070705
  Transmission Date: 20080115
  Serious: No
  Sender: FDA-Public Use
  Company Number: None

PATIENT
  Age: 48 Year
  Sex: Female
  Weight: 42.6381 kg

DRUGS (1)
  1. LEVAQUIN [Suspect]
     Indication: URINARY TRACT INFECTION
     Dosage: 1 PER DAY
     Dates: start: 20070425, end: 20070430

REACTIONS (3)
  - DRUG ERUPTION [None]
  - PRURITUS GENERALISED [None]
  - RASH GENERALISED [None]
